FAERS Safety Report 9091967 (Version 1)
Quarter: 2013Q1

REPORT INFORMATION
  Report Type: Report from Study
  Country: US (occurrence: US)
  Receive Date: 20130131
  Receipt Date: 20130131
  Transmission Date: 20140127
  Serious: No
  Sender: FDA-Public Use
  Company Number: US-ABBOTT-12P-163-1003751-00

PATIENT
  Age: 64 Year
  Sex: Male

DRUGS (14)
  1. HUMIRA [Suspect]
     Indication: CROHN^S DISEASE
     Dates: start: 20121005, end: 20121005
  2. HUMIRA [Suspect]
     Dates: start: 20121019
  3. CIPRO [Concomitant]
     Indication: CROHN^S DISEASE
  4. IMURAN [Concomitant]
     Indication: CROHN^S DISEASE
     Dosage: 150MG (3 TABLETS) DAILY
  5. LOMOTIL [Concomitant]
     Indication: DIARRHOEA
  6. BENAZEPRIL [Concomitant]
     Indication: HYPERTENSION
  7. COUMADIN [Concomitant]
     Indication: THROMBOSIS
     Dosage: 3 MG DAILY
  8. COUMADIN [Concomitant]
     Indication: ATRIAL FIBRILLATION
  9. VITAMIN B12 [Concomitant]
     Indication: PRODUCT USED FOR UNKNOWN INDICATION
     Route: 050
  10. IRON [Concomitant]
     Indication: PRODUCT USED FOR UNKNOWN INDICATION
  11. TRICOR [Concomitant]
     Indication: BLOOD TRIGLYCERIDES INCREASED
     Dosage: 48 MG DAILY
  12. GLUCOSAMINE [Concomitant]
     Indication: PRODUCT USED FOR UNKNOWN INDICATION
  13. ASPIRIN [Concomitant]
     Indication: PRODUCT USED FOR UNKNOWN INDICATION
     Dosage: 81 MG DAILY
  14. PREDNISONE [Concomitant]
     Indication: PRODUCT USED FOR UNKNOWN INDICATION
     Dosage: 10 MG DAILY

REACTIONS (1)
  - Injection site reaction [Recovering/Resolving]
